FAERS Safety Report 13890132 (Version 1)
Quarter: 2017Q3

REPORT INFORMATION
  Report Type: Spontaneous
  Country: JP (occurrence: JP)
  Receive Date: 20170822
  Receipt Date: 20170822
  Transmission Date: 20171127
  Serious: Yes (Other)
  Sender: FDA-Public Use
  Company Number: JP-CIPLA LTD.-2017JP13989

PATIENT

DRUGS (11)
  1. LAMIVUDINE. [Suspect]
     Active Substance: LAMIVUDINE
     Indication: HIV INFECTION
     Dosage: UNK
     Route: 065
  2. ABACAVIR. [Suspect]
     Active Substance: ABACAVIR
     Indication: HIV INFECTION
     Dosage: UNK
     Route: 065
  3. VALGANCICLOVIR. [Suspect]
     Active Substance: VALGANCICLOVIR
     Dosage: 450 MG, PER DAY
     Route: 065
  4. VALGANCICLOVIR. [Suspect]
     Active Substance: VALGANCICLOVIR
     Dosage: 900 MG, PER DAY, THREE-WEEK INDUCTION THERAPY
     Route: 065
  5. DOLUTEGRAVIR [Suspect]
     Active Substance: DOLUTEGRAVIR
     Indication: HIV INFECTION
     Dosage: 50 MG, PER DAY
     Route: 065
  6. FEBUXOSTAT. [Concomitant]
     Active Substance: FEBUXOSTAT
     Indication: HYPERURICAEMIA
     Dosage: UNK
     Route: 065
  7. TENOFOVIR [Suspect]
     Active Substance: TENOFOVIR
     Indication: HIV INFECTION
     Dosage: 300 MG, PER DAY
     Route: 065
  8. EMTRICITABINE [Suspect]
     Active Substance: EMTRICITABINE
     Indication: HIV INFECTION
     Dosage: 200 MG, PER DAY
     Route: 065
  9. VALGANCICLOVIR. [Suspect]
     Active Substance: VALGANCICLOVIR
     Indication: PROPHYLAXIS
     Dosage: 450 MG, PER DAY
     Route: 065
  10. PENTAMIDINE [Concomitant]
     Active Substance: PENTAMIDINE
     Indication: PROPHYLAXIS
     Dosage: 300 MG, ONCE A MONTH
  11. AZITHROMYCIN ANHYDROUS. [Concomitant]
     Active Substance: AZITHROMYCIN ANHYDROUS
     Indication: ANTIBIOTIC PROPHYLAXIS
     Dosage: 1200 MG, ONCE A WEEK
     Route: 065

REACTIONS (4)
  - Thrombocytopenia [Recovered/Resolved]
  - Leukopenia [Unknown]
  - Cytomegalovirus infection [Unknown]
  - Anaemia [Unknown]
